FAERS Safety Report 10411438 (Version 1)
Quarter: 2014Q3

REPORT INFORMATION
  Report Type: Not Available
  Country: US (occurrence: US)
  Receive Date: 20140827
  Receipt Date: 20140827
  Transmission Date: 20150326
  Serious: Yes (Other)
  Sender: FDA-Public Use
  Company Number: US-LUPIN PHARMACEUTICALS INC.-E2B_00002392

PATIENT
  Age: 18 Year
  Sex: Female
  Weight: 73.55 kg

DRUGS (4)
  1. LEVETIRACETAM EXTENDED-RELEASE [Suspect]
     Active Substance: LEVETIRACETAM
     Indication: CONVULSION
     Dates: start: 20140603
  2. TRI-CYCLEN [Concomitant]
     Indication: CONTRACEPTION
     Route: 065
  3. FOLIC ACID. [Concomitant]
     Active Substance: FOLIC ACID
     Indication: PRODUCT USED FOR UNKNOWN INDICATION
     Route: 065
  4. LEVETIRACETAM TABLETS USP 500MG [Concomitant]
     Active Substance: LEVETIRACETAM
     Indication: CONVULSION
     Dates: start: 201312, end: 20140602

REACTIONS (3)
  - Convulsion [Recovered/Resolved]
  - Tremor [Recovered/Resolved]
  - Drug ineffective [Unknown]

NARRATIVE: CASE EVENT DATE: 2014
